FAERS Safety Report 8095825-8 (Version None)
Quarter: 2012Q1

REPORT INFORMATION
  Report Type: 
  Country: None (occurrence: None)
  Receive Date: 20120129
  Receipt Date: 20111222
  Transmission Date: 20120608
  Serious: No
  Sender: FDA-Public Use
  Company Number: US-ABBOTT-11P-163-0886461-00

PATIENT
  Age: 66 Year
  Sex: Male

DRUGS (10)
  1. HUMIRA [Suspect]
     Dates: start: 20111220
  2. WELCHOL [Concomitant]
     Indication: PRODUCT USED FOR UNKNOWN INDICATION
  3. VIIBRYD [Concomitant]
     Indication: PRODUCT USED FOR UNKNOWN INDICATION
  4. MG [Concomitant]
     Indication: PRODUCT USED FOR UNKNOWN INDICATION
  5. BASCHOL [Concomitant]
     Indication: PRODUCT USED FOR UNKNOWN INDICATION
  6. HUMIRA [Suspect]
     Indication: COLITIS ULCERATIVE
     Dates: start: 20111206, end: 20111206
  7. VITAMIN D [Concomitant]
     Indication: PRODUCT USED FOR UNKNOWN INDICATION
  8. MULTI-VITAMINS [Concomitant]
     Indication: PRODUCT USED FOR UNKNOWN INDICATION
  9. LOMOTAL [Concomitant]
     Indication: PRODUCT USED FOR UNKNOWN INDICATION
     Dosage: TID PRN
  10. CALCIUM [Concomitant]
     Indication: PRODUCT USED FOR UNKNOWN INDICATION

REACTIONS (3)
  - DIARRHOEA [None]
  - ABDOMINAL PAIN [None]
  - DEFAECATION URGENCY [None]
